FAERS Safety Report 25430213 (Version 1)
Quarter: 2025Q2

REPORT INFORMATION
  Report Type: Spontaneous
  Country: US (occurrence: None)
  Receive Date: 20250612
  Receipt Date: 20250612
  Transmission Date: 20250717
  Serious: Yes (Hospitalization)
  Sender: FDA-CTU
  Company Number: None

PATIENT
  Sex: Female

DRUGS (2)
  1. ICATIBANT [Suspect]
     Active Substance: ICATIBANT ACETATE
     Indication: Complement deficiency disease
     Route: 058
     Dates: start: 20240202
  2. TAKHZYRO [Suspect]
     Active Substance: LANADELUMAB-FLYO

REACTIONS (9)
  - Weight decreased [None]
  - Abdominal discomfort [None]
  - Diarrhoea [None]
  - Chills [None]
  - Nausea [None]
  - Dizziness [None]
  - Hyperhidrosis [None]
  - Blindness unilateral [None]
  - Transient ischaemic attack [None]
